FAERS Safety Report 18681757 (Version 1)
Quarter: 2020Q4

REPORT INFORMATION
  Report Type: Spontaneous
  Country: US (occurrence: US)
  Receive Date: 20201228
  Receipt Date: 20201228
  Transmission Date: 20210114
  Serious: Yes (Life-Threatening, Hospitalization)
  Sender: FDA-Public Use
  Company Number: None

PATIENT
  Age: 63 Year
  Sex: Male
  Weight: 77.11 kg

DRUGS (1)
  1. APIXABAN (APIXABAN 5MG TAB) [Suspect]
     Active Substance: APIXABAN
     Indication: ATRIAL FIBRILLATION
     Route: 048
     Dates: start: 20200730, end: 20200817

REACTIONS (4)
  - Pericardial effusion [None]
  - Congestive hepatopathy [None]
  - Ischaemic hepatitis [None]
  - International normalised ratio increased [None]

NARRATIVE: CASE EVENT DATE: 20200805
